FAERS Safety Report 8159032-2 (Version None)
Quarter: 2012Q1

REPORT INFORMATION
  Report Type: 
  Country: None (occurrence: None)
  Receive Date: 20120103
  Receipt Date: 20110910
  Transmission Date: 20120608
  Serious: No
  Sender: FDA-Public Use
  Company Number: AE-2011-001474

PATIENT
  Age: 45 Year
  Sex: Female
  Weight: 62.1428 kg

DRUGS (6)
  1. WELLBUTRIN [Concomitant]
  2. INCIVEK [Suspect]
     Dosage: 3 IN 1 D
     Dates: start: 20110909
  3. BLOOD PRESSURE MEDS [Concomitant]
  4. PEGASYS [Concomitant]
  5. AMBIEN [Concomitant]
  6. RIBAVIRIN [Concomitant]

REACTIONS (2)
  - HEADACHE [None]
  - PYREXIA [None]
